FAERS Safety Report 4553453-2 (Version None)
Quarter: 2005Q1

REPORT INFORMATION
  Report Type: 
  Country: None (occurrence: None)
  Receive Date: 20050112
  Receipt Date: 20041222
  Transmission Date: 20050727
  Serious: Yes (Hospitalization)
  Sender: FDA-Public Use
  Company Number: US_020584181

PATIENT
  Age: 52 Year
  Sex: Female
  Weight: 58 kg

DRUGS (8)
  1. HUMALOG [Suspect]
     Indication: DIABETES MELLITUS NON-INSULIN-DEPENDENT
     Dosage: 6 U DAY
     Dates: start: 20020106
  2. BASEN (VOGLIBOSE) [Concomitant]
  3. NORVASC [Concomitant]
  4. CARDENALIN (DOXAZOSIN MALEATE) [Concomitant]
  5. METFORMIN HYDROCHLORIDE [Concomitant]
  6. ENALAPRIL MALEATE [Concomitant]
  7. FERROMIA (FERROUS CITRATE) [Concomitant]
  8. AMARYL [Concomitant]

REACTIONS (3)
  - CONDITION AGGRAVATED [None]
  - DIABETIC RETINOPATHY [None]
  - RETINAL HAEMORRHAGE [None]
